FAERS Safety Report 7165960-7 (Version None)
Quarter: 2010Q4

REPORT INFORMATION
  Report Type: 
  Country: None (occurrence: None)
  Receive Date: 20101216
  Receipt Date: 20101202
  Transmission Date: 20110411
  Serious: No
  Sender: FDA-Public Use
  Company Number: US-BIOGENIDEC-2010BI042590

PATIENT
  Age: 47 Year
  Sex: Female

DRUGS (2)
  1. TYSABRI [Suspect]
     Indication: MULTIPLE SCLEROSIS
     Route: 042
     Dates: start: 20101020
  2. TYSABRI [Suspect]
     Route: 042
     Dates: start: 20061116, end: 20090306

REACTIONS (3)
  - DEPRESSION [None]
  - DYSSTASIA [None]
  - GAIT DISTURBANCE [None]
